FAERS Safety Report 4846558-X (Version None)
Quarter: 2005Q4

REPORT INFORMATION
  Report Type: 
  Country: None (occurrence: None)
  Receive Date: 20051202
  Receipt Date: 20051118
  Transmission Date: 20060501
  Serious: Yes (Hospitalization, Other)
  Sender: FDA-Public Use
  Company Number: KII-2005-0019826

PATIENT
  Age: 24 Year
  Sex: Male

DRUGS (4)
  1. OXYCONTIN [Suspect]
     Dosage: ORAL
     Route: 048
  2. BENZODIAZEPINE DERIATIVES [Suspect]
     Dosage: ORAL
     Route: 048
  3. COCAINE(COCAINE) [Suspect]
     Indication: INTENTIONAL DRUG MISUSE
  4. TETRAHYDROCANNABINOL(TETRAHYDROCANNABINOL) [Suspect]
     Indication: INTENTIONAL DRUG MISUSE

REACTIONS (7)
  - FOAMING AT MOUTH [None]
  - HYPOVENTILATION [None]
  - LETHARGY [None]
  - MULTIPLE DRUG OVERDOSE INTENTIONAL [None]
  - OXYGEN SATURATION DECREASED [None]
  - POLYSUBSTANCE ABUSE [None]
  - RESPIRATORY ACIDOSIS [None]
